FAERS Safety Report 9898803 (Version 2)
Quarter: 2014Q1

REPORT INFORMATION
  Report Type: Spontaneous
  Country: US (occurrence: US)
  Receive Date: 20140214
  Receipt Date: 20140214
  Transmission Date: 20141002
  Serious: No
  Sender: FDA-Public Use
  Company Number: US-GILEAD-2011-0047490

PATIENT
  Age: 31 Year
  Sex: Male

DRUGS (6)
  1. LETAIRIS [Suspect]
     Indication: PULMONARY HYPERTENSION
     Dosage: 10 MG, UNK
     Route: 048
     Dates: start: 20111003, end: 20111123
  2. LETAIRIS [Suspect]
     Indication: HAEMODIALYSIS
  3. LETAIRIS [Suspect]
     Indication: UNEVALUABLE EVENT
  4. LETAIRIS [Suspect]
     Indication: PULMONARY EMBOLISM
  5. LETAIRIS [Suspect]
     Indication: HYPERTENSION
  6. LETAIRIS [Suspect]
     Indication: CARDIAC DISORDER

REACTIONS (1)
  - Rash generalised [Recovered/Resolved]
